FAERS Safety Report 17140537 (Version 1)
Quarter: 2019Q4

REPORT INFORMATION
  Report Type: Spontaneous
  Country: RO (occurrence: RO)
  Receive Date: 20191211
  Receipt Date: 20191211
  Transmission Date: 20200122
  Serious: Yes (Death, Other)
  Sender: FDA-Public Use
  Company Number: RO-TEVA-2019-RO-1150986

PATIENT
  Sex: Female

DRUGS (4)
  1. AZILECT [Suspect]
     Active Substance: RASAGILINE MESYLATE
     Route: 065
  2. SORTIS [Concomitant]
     Active Substance: ATORVASTATIN
  3. METOPROLOL. [Concomitant]
     Active Substance: METOPROLOL
  4. ASPENTER [Concomitant]
     Active Substance: ASPIRIN

REACTIONS (2)
  - Sepsis [Fatal]
  - Urinary tract infection [Unknown]
